FAERS Safety Report 5413450-1 (Version None)
Quarter: 2007Q3

REPORT INFORMATION
  Report Type: 
  Country: None (occurrence: None)
  Receive Date: 20070809
  Receipt Date: 20070809
  Transmission Date: 20080115
  Serious: No
  Sender: FDA-Public Use
  Company Number: None

PATIENT
  Sex: Female
  Weight: 73.4827 kg

DRUGS (1)
  1. NULYTELY [Suspect]
     Indication: COLONOSCOPY
     Dosage: DRINK 240ML EVERY 10 MINUTES PO
     Route: 048
     Dates: start: 20070530, end: 20070531

REACTIONS (5)
  - CHEST INJURY [None]
  - IMPAIRED HEALING [None]
  - IMPAIRED WORK ABILITY [None]
  - MUSCULOSKELETAL CHEST PAIN [None]
  - VOMITING [None]
